FAERS Safety Report 7701912-3 (Version None)
Quarter: 2011Q3

REPORT INFORMATION
  Report Type: 
  Country: None (occurrence: None)
  Receive Date: 20110822
  Receipt Date: 20110811
  Transmission Date: 20111222
  Serious: Yes (Disabling, Other)
  Sender: FDA-Public Use
  Company Number: FR-ASTRAZENECA-2002AP01116

PATIENT
  Age: 33 Year
  Sex: Female

DRUGS (3)
  1. SUFENTANIL CITRATE [Suspect]
     Indication: EPIDURAL ANAESTHESIA
     Route: 008
  2. ROPIVACAINE HYDROCHLORIDE [Suspect]
     Indication: EPIDURAL ANAESTHESIA
     Route: 008
  3. BUPIVACAINE SPINAL [Suspect]
     Indication: SPINAL ANAESTHESIA
     Route: 037

REACTIONS (1)
  - CAUDA EQUINA SYNDROME [None]
